FAERS Safety Report 23771686 (Version 1)
Quarter: 2024Q2

REPORT INFORMATION
  Report Type: Spontaneous
  Country: CA (occurrence: None)
  Receive Date: 20240423
  Receipt Date: 20240423
  Transmission Date: 20240717
  Serious: Yes (Hospitalization, Other)
  Sender: FDA-Public Use
  Company Number: 2024A091596

PATIENT
  Age: 76 Year
  Sex: Male

DRUGS (18)
  1. QUETIAPINE [Suspect]
     Active Substance: QUETIAPINE
     Indication: Hallucination
     Route: 048
  2. QUETIAPINE [Suspect]
     Active Substance: QUETIAPINE
     Indication: Accommodation disorder
     Route: 048
  3. QUETIAPINE [Suspect]
     Active Substance: QUETIAPINE
     Indication: Hallucination
     Route: 048
  4. QUETIAPINE [Suspect]
     Active Substance: QUETIAPINE
     Indication: Accommodation disorder
     Route: 048
  5. QUETIAPINE [Suspect]
     Active Substance: QUETIAPINE
     Indication: Hallucination
     Route: 048
  6. QUETIAPINE [Suspect]
     Active Substance: QUETIAPINE
     Indication: Accommodation disorder
     Route: 048
  7. QUETIAPINE [Suspect]
     Active Substance: QUETIAPINE
     Indication: Hallucination
     Route: 048
  8. QUETIAPINE [Suspect]
     Active Substance: QUETIAPINE
     Indication: Accommodation disorder
     Route: 048
  9. CITALOPRAM [Suspect]
     Active Substance: CITALOPRAM\CITALOPRAM HYDROBROMIDE
  10. CLONAZEPAM [Suspect]
     Active Substance: CLONAZEPAM
  11. RISPERIDONE [Suspect]
     Active Substance: RISPERIDONE
     Indication: Injury
  12. RIVASTIGMINE [Suspect]
     Active Substance: RIVASTIGMINE
     Route: 062
  13. TRAZODONE [Suspect]
     Active Substance: TRAZODONE HYDROCHLORIDE
  14. TRAZODONE [Suspect]
     Active Substance: TRAZODONE HYDROCHLORIDE
  15. TRAZODONE [Suspect]
     Active Substance: TRAZODONE HYDROCHLORIDE
  16. OLANZAPINE [Suspect]
     Active Substance: OLANZAPINE
     Indication: Injury
     Dosage: 2.5MG UNKNOWN
  17. OLANZAPINE [Suspect]
     Active Substance: OLANZAPINE
     Indication: Agitation
     Dosage: 2.5MG UNKNOWN
  18. OLANZAPINE [Suspect]
     Active Substance: OLANZAPINE
     Indication: Communication disorder
     Dosage: 2.5MG UNKNOWN

REACTIONS (2)
  - Parkinsonism [Recovered/Resolved]
  - Off label use [Recovered/Resolved]
